FAERS Safety Report 6589863-1 (Version None)
Quarter: 2010Q1

REPORT INFORMATION
  Report Type: 
  Country: None (occurrence: None)
  Receive Date: 20100219
  Receipt Date: 20100211
  Transmission Date: 20100710
  Serious: Yes (Hospitalization, Other)
  Sender: FDA-Public Use
  Company Number: US-JNJFOC-20091102091

PATIENT
  Sex: Male

DRUGS (2)
  1. LEVAQUIN [Suspect]
     Indication: INFLAMMATION
     Route: 048
     Dates: start: 20070417, end: 20070425
  2. LEVAQUIN [Suspect]
     Indication: MALAISE
     Route: 048
     Dates: start: 20070417, end: 20070425

REACTIONS (7)
  - CARTILAGE INJURY [None]
  - CHONDROPATHY [None]
  - DEPRESSION [None]
  - EPICONDYLITIS [None]
  - STRESS [None]
  - TENDON DISORDER [None]
  - TENDON RUPTURE [None]
